FAERS Safety Report 8298309-7 (Version None)
Quarter: 2012Q2

REPORT INFORMATION
  Report Type: 
  Country: None (occurrence: None)
  Receive Date: 20120419
  Receipt Date: 20120405
  Transmission Date: 20120825
  Serious: Yes (Death)
  Sender: FDA-Public Use
  Company Number: JP-ROCHE-1057077

PATIENT
  Sex: Male
  Weight: 52 kg

DRUGS (11)
  1. LASIX [Concomitant]
     Indication: RENAL FAILURE CHRONIC
     Route: 048
     Dates: start: 20100705, end: 20120404
  2. SEVELAMER HYDROCHLORIDE [Concomitant]
     Indication: HYPERPHOSPHATAEMIA
     Route: 048
     Dates: start: 20120228, end: 20120404
  3. CALCIUM CARBONATE [Concomitant]
     Indication: HYPERPHOSPHATAEMIA
     Route: 048
     Dates: start: 20100810, end: 20120404
  4. NORVASC [Concomitant]
     Indication: HYPERTENSION
     Route: 048
     Dates: start: 20100930, end: 20120404
  5. MIRCERA [Suspect]
     Indication: NEPHROGENIC ANAEMIA
     Route: 042
     Dates: start: 20120403, end: 20120403
  6. LANSOPRAZOLE [Concomitant]
     Indication: GASTROOESOPHAGEAL REFLUX DISEASE
     Route: 048
     Dates: start: 20100427, end: 20120404
  7. FERROUS CITRATE [Concomitant]
     Indication: ANAEMIA
     Route: 048
     Dates: start: 20100726, end: 20120404
  8. TRICHLORMETHIAZIDE [Concomitant]
     Indication: RENAL FAILURE CHRONIC
     Route: 048
     Dates: start: 20100628, end: 20120404
  9. ASPIRIN [Concomitant]
     Indication: MYOCARDIAL ISCHAEMIA
     Route: 048
     Dates: start: 20100225, end: 20120404
  10. DIAZEPAM [Concomitant]
     Indication: ANXIETY
     Route: 048
     Dates: start: 20110201, end: 20120404
  11. ONEALFA [Concomitant]
     Indication: HYPERPARATHYROIDISM SECONDARY
     Route: 048
     Dates: start: 20120130, end: 20120404

REACTIONS (1)
  - CARDIO-RESPIRATORY ARREST [None]
